FAERS Safety Report 4938509-4 (Version None)
Quarter: 2006Q1

REPORT INFORMATION
  Report Type: 
  Country: None (occurrence: None)
  Receive Date: 20060308
  Receipt Date: 20060308
  Transmission Date: 20060701
  Serious: Yes (Death)
  Sender: FDA-Public Use
  Company Number: None

PATIENT
  Age: 48 Year
  Sex: Male
  Weight: 90.7194 kg

DRUGS (2)
  1. OXYCONTIN [Suspect]
     Indication: BACK PAIN
     Dates: start: 20050801, end: 20051116
  2. OXYCONTIN [Suspect]
     Indication: INTERVERTEBRAL DISC DISORDER
     Dates: start: 20050801, end: 20051116

REACTIONS (1)
  - RESPIRATORY DEPRESSION [None]
